FAERS Safety Report 9411447 (Version 1)
Quarter: 2013Q3

REPORT INFORMATION
  Report Type: Report from Study
  Country: GR (occurrence: GR)
  Receive Date: 20130722
  Receipt Date: 20130722
  Transmission Date: 20140515
  Serious: Yes (Death)
  Sender: FDA-Public Use
  Company Number: GR-PFIZER INC-2013209752

PATIENT
  Age: 61 Year
  Sex: Female
  Weight: 68.5 kg

DRUGS (19)
  1. TEMSIROLIMUS [Suspect]
     Indication: PANCREATIC CARCINOMA METASTATIC
     Dosage: 25 MG, WEEKLY
     Route: 042
     Dates: start: 20130711
  2. GEMZAR [Suspect]
     Indication: PANCREATIC CARCINOMA METASTATIC
     Dosage: 1700 MG, CYCLIC (EVERY TWO WEEKS)
     Route: 042
     Dates: start: 20130711
  3. APIDRA [Suspect]
     Indication: DIABETES MELLITUS
     Dosage: 100 IU/ML, DEPENDING ON GLUCOSE VALUE
     Dates: end: 20130714
  4. LANTUS [Suspect]
     Indication: DIABETES MELLITUS
     Dosage: 100 IU/ML, DEPENDING ON GLUCOSE VALUE
     Dates: end: 20130714
  5. SOLU-CORTEF [Concomitant]
     Indication: PREMEDICATION
     Dosage: 250 MG, EVERY THERAPY
     Route: 042
     Dates: start: 20130711, end: 20130711
  6. NORVASC [Concomitant]
     Indication: HYPERTENSION
     Dosage: 10 MG, 1X/DAY
     Route: 048
     Dates: end: 20130714
  7. ZOFRON [Concomitant]
     Indication: PREMEDICATION
     Dosage: 8 MG, EVERY THERAPY
     Route: 042
     Dates: start: 20130711, end: 20130711
  8. ZANTAC [Concomitant]
     Indication: PREMEDICATION
     Dosage: 50 MG, EVERY THERAPY
     Route: 042
     Dates: start: 20130711, end: 20130711
  9. ZANTAC [Concomitant]
     Indication: PROPHYLAXIS
     Dosage: 150 MG, 1X/DAY
     Route: 048
     Dates: end: 20130714
  10. FENISTIL [Concomitant]
     Indication: PREMEDICATION
     Dosage: 8 MG, EVERY THERAPY
     Route: 042
     Dates: start: 20130711, end: 20130711
  11. SALOSPIR [Concomitant]
     Indication: HYPERTENSION
     Dosage: 100 MG, 1X/DAY
     Route: 048
     Dates: end: 20130714
  12. CARVEDILEN [Concomitant]
     Indication: HYPERTENSION
     Dosage: 12.5 MG, 1X/DAY
     Route: 048
     Dates: end: 20130714
  13. COAPROVEL [Concomitant]
     Indication: HYPERTENSION
     Dosage: 150 MG, 1X/DAY
     Route: 048
     Dates: end: 20130714
  14. XOZAL [Concomitant]
     Indication: PRURITUS
     Dosage: 0.5 MG, 1X/DAY
     Route: 048
     Dates: end: 20130714
  15. DELFOZA [Concomitant]
     Indication: OSTEOPOROSIS
     Dosage: 70 MG, 1X/DAY
     Route: 048
     Dates: end: 20130714
  16. DEPON [Concomitant]
     Indication: PAIN
     Dosage: 500 MG, OCCASIONALLY ON PAIN
     Route: 048
     Dates: end: 20130714
  17. VITOCALCIT [Concomitant]
     Indication: OSTEOPOROSIS
     Dosage: 1 MG, 1X/DAY
     Route: 048
     Dates: end: 20130714
  18. CREON [Concomitant]
     Indication: PANCREATIC CARCINOMA
     Dosage: 150 MG, 1X/DAY
     Route: 048
     Dates: end: 20130714
  19. CLEXANE [Concomitant]
     Indication: PROPHYLAXIS
     Dosage: 400 MG, 1X/DAY
     Dates: start: 20130711, end: 20130714

REACTIONS (1)
  - Death [Fatal]
